FAERS Safety Report 15299421 (Version 2)
Quarter: 2018Q3

REPORT INFORMATION
  Report Type: Report from Study
  Country: None (occurrence: FR)
  Receive Date: 20180821
  Receipt Date: 20180822
  Transmission Date: 20181010
  Serious: Yes (Other)
  Sender: FDA-Public Use
  Company Number: FR-ABBVIE-18K-056-2443457-00

PATIENT
  Age: 78 Year
  Sex: Male
  Weight: 52 kg

DRUGS (30)
  1. VENCLYXTO [Suspect]
     Active Substance: VENETOCLAX
     Route: 048
     Dates: start: 20180523, end: 20180529
  2. MYDRIATICUM [Concomitant]
     Active Substance: TROPICAMIDE
     Indication: VISUAL IMPAIRMENT
     Dates: start: 20180507, end: 20180605
  3. SODIUM CHLOROAURATE [Concomitant]
     Indication: FLUID OVERLOAD
     Dosage: SODIUM CHLORATE 0.9%
     Dates: start: 20180507, end: 20180511
  4. MAXIDEX [Concomitant]
     Active Substance: DEXAMETHASONE
     Indication: VISUAL IMPAIRMENT
     Dates: start: 20180507, end: 20180514
  5. MAXIDEX [Concomitant]
     Active Substance: DEXAMETHASONE
     Dates: start: 20180606
  6. TOBRADEX [Concomitant]
     Active Substance: DEXAMETHASONE\TOBRAMYCIN
     Indication: VISUAL IMPAIRMENT
     Dates: start: 20180517, end: 20180605
  7. ALGINATE DE SODIUM/BICARBONATE DE SODIUM [Concomitant]
     Indication: DYSPEPSIA
     Dosage: IF REQUIRED
     Dates: start: 20180509, end: 20180610
  8. PARACETAMOL [Concomitant]
     Active Substance: ACETAMINOPHEN
     Indication: PAIN
     Dosage: IF REQUIRED
     Dates: start: 20180507
  9. VENCLYXTO [Suspect]
     Active Substance: VENETOCLAX
     Indication: CHRONIC LYMPHOCYTIC LEUKAEMIA
     Route: 048
     Dates: start: 20180509, end: 20180516
  10. SODIUM BICARBONATE. [Concomitant]
     Active Substance: SODIUM BICARBONATE
     Indication: ORAL PAIN
     Dates: start: 20180507
  11. REFRESH CELLUVISC [Concomitant]
     Active Substance: CARBOXYMETHYLCELLULOSE SODIUM
     Indication: VISUAL IMPAIRMENT
     Dates: start: 20180606
  12. AZITHROMYCINE [Concomitant]
     Active Substance: AZITHROMYCIN DIHYDRATE
     Indication: PRODUCT USED FOR UNKNOWN INDICATION
     Dates: start: 20180508, end: 20180610
  13. VENCLYXTO [Suspect]
     Active Substance: VENETOCLAX
     Route: 048
     Dates: start: 20180516, end: 20180522
  14. VENCLYXTO [Suspect]
     Active Substance: VENETOCLAX
     Route: 048
     Dates: start: 20180530, end: 20180605
  15. MAXIDEX [Concomitant]
     Active Substance: DEXAMETHASONE
     Indication: VISUAL IMPAIRMENT
     Dates: start: 20180507
  16. ALLOPURINOL. [Concomitant]
     Active Substance: ALLOPURINOL
     Indication: PRODUCT USED FOR UNKNOWN INDICATION
     Dates: start: 20180507, end: 20180610
  17. TRANXENE [Concomitant]
     Active Substance: CLORAZEPATE DIPOTASSIUM
     Dates: start: 20180530, end: 20180531
  18. ACUPAN [Concomitant]
     Active Substance: NEFOPAM HYDROCHLORIDE
     Indication: PAIN
     Dosage: IF REQUIRED
     Dates: start: 20180507, end: 20180608
  19. SODIUM CHLOROAURATE [Concomitant]
     Dates: start: 20180515, end: 20180518
  20. TRANXENE [Concomitant]
     Active Substance: CLORAZEPATE DIPOTASSIUM
     Indication: ANXIETY
     Dates: start: 20180507, end: 20180511
  21. TRANXENE [Concomitant]
     Active Substance: CLORAZEPATE DIPOTASSIUM
     Dates: start: 20180606, end: 20180608
  22. VENCLYXTO [Suspect]
     Active Substance: VENETOCLAX
     Route: 048
     Dates: start: 20180606
  23. JOSIR [Concomitant]
     Active Substance: TAMSULOSIN
     Indication: BENIGN PROSTATIC HYPERPLASIA
     Dates: start: 20180507, end: 20180611
  24. TRANXENE [Concomitant]
     Active Substance: CLORAZEPATE DIPOTASSIUM
     Dates: start: 20180515, end: 20180518
  25. GLUCOSE [Concomitant]
     Active Substance: DEXTROSE
     Indication: FLUID OVERLOAD
     Dosage: GLUCOSE 5%
     Dates: start: 20180530, end: 20180531
  26. XATRAL [Concomitant]
     Active Substance: ALFUZOSIN
     Indication: BENIGN PROSTATIC HYPERPLASIA
     Dates: start: 20180507, end: 20180613
  27. SODIUM CHLOROAURATE [Concomitant]
     Dates: start: 20180523, end: 20180524
  28. SODIUM CHLOROAURATE [Concomitant]
     Dates: start: 20180606, end: 20180608
  29. TRANXENE [Concomitant]
     Active Substance: CLORAZEPATE DIPOTASSIUM
     Dates: start: 20180523, end: 20180524
  30. PREDNISONE. [Concomitant]
     Active Substance: PREDNISONE
     Indication: ARTHRITIS BACTERIAL
     Dates: start: 20180613, end: 20180622

REACTIONS (7)
  - Hyperkalaemia [Recovered/Resolved]
  - Hyperkalaemia [Recovered/Resolved]
  - Neutropenia [Recovered/Resolved]
  - Asthenia [Not Recovered/Not Resolved]
  - Hyperkalaemia [Recovered/Resolved]
  - Dysphagia [Not Recovered/Not Resolved]
  - Oral fungal infection [Not Recovered/Not Resolved]

NARRATIVE: CASE EVENT DATE: 20180509
